FAERS Safety Report 5125242-1 (Version None)
Quarter: 2006Q4

REPORT INFORMATION
  Report Type: 
  Country: None (occurrence: None)
  Receive Date: 20061010
  Receipt Date: 20061010
  Transmission Date: 20070319
  Serious: Yes (Hospitalization)
  Sender: FDA-Public Use
  Company Number: None

PATIENT
  Age: 85 Year

DRUGS (5)
  1. NEOMYCIN [Suspect]
     Indication: INFECTION
     Dosage: 1000 MG Q 6 H
     Dates: start: 20060905
  2. BACTRIM DS [Suspect]
     Indication: INFECTION
     Dosage: 1 BID
     Dates: start: 20060703
  3. GLYBURIDE [Concomitant]
  4. TERAZOSIN HCL [Concomitant]
  5. RANITIDINE [Concomitant]

REACTIONS (2)
  - HEPATOTOXICITY [None]
  - NEPHROPATHY TOXIC [None]
